FAERS Safety Report 21094269 (Version 1)
Quarter: 2022Q3

REPORT INFORMATION
  Report Type: Spontaneous
  Country: JP (occurrence: JP)
  Receive Date: 20220718
  Receipt Date: 20220718
  Transmission Date: 20221027
  Serious: Yes (Other)
  Sender: FDA-Public Use
  Company Number: JP-PFIZER INC-PV202200023316

PATIENT

DRUGS (2)
  1. INLYTA [Suspect]
     Active Substance: AXITINIB
  2. PREDONINE [Concomitant]
     Active Substance: PREDNISOLONE

REACTIONS (1)
  - Rheumatoid arthritis [Recovering/Resolving]
